FAERS Safety Report 5765064-1 (Version None)
Quarter: 2008Q2

REPORT INFORMATION
  Report Type: 
  Country: None (occurrence: None)
  Receive Date: 20080611
  Receipt Date: 20080605
  Transmission Date: 20081010
  Serious: Yes (Death)
  Sender: FDA-Public Use
  Company Number: AT-BRISTOL-MYERS SQUIBB COMPANY-14212682

PATIENT
  Age: 62 Year
  Sex: Male

DRUGS (6)
  1. CYCLOPHOSPHAMIDE [Suspect]
  2. BASILIXIMAB [Suspect]
  3. PREDNISOLONE [Suspect]
  4. SIROLIMUS [Suspect]
  5. TACROLIMUS [Suspect]
  6. ALEMTUZUMAB [Suspect]

REACTIONS (3)
  - ACUTE GRAFT VERSUS HOST DISEASE [None]
  - MULTI-ORGAN FAILURE [None]
  - SEPSIS [None]
